FAERS Safety Report 7743017-1 (Version None)
Quarter: 2011Q3

REPORT INFORMATION
  Report Type: 
  Country: None (occurrence: None)
  Receive Date: 20110906
  Receipt Date: 20110825
  Transmission Date: 20111222
  Serious: Yes (Hospitalization)
  Sender: FDA-Public Use
  Company Number: 2011SP028926

PATIENT
  Age: 71 Year
  Sex: Female
  Weight: 70 kg

DRUGS (12)
  1. VIRAFERONPEG [Suspect]
     Indication: HEPATITIS C
     Dosage: 100 MCG;QW;SC
     Route: 058
     Dates: start: 20110509
  2. TOCO [Concomitant]
  3. BOCEPREVIR (SCH-503034) [Suspect]
     Indication: HEPATITIS C
     Dosage: 800 MG;TID;PO
     Route: 048
     Dates: start: 20110606
  4. TEMERIT /01339101/ [Concomitant]
  5. ESCITALOPRAM OXALATE [Concomitant]
  6. SPECIAFOLDINE [Concomitant]
  7. IRBESARTAN AND HYDROCHLOROTHIAZIDE [Concomitant]
  8. ACETAMINOPHEN [Concomitant]
  9. LERCANIDIPINE [Concomitant]
  10. LANSOPRAZOLE [Concomitant]
  11. REBETOL [Suspect]
     Indication: HEPATITIS C
     Dosage: 200 MG;BID
     Dates: start: 20110509
  12. ASCORBIC ACID [Concomitant]

REACTIONS (14)
  - PANCYTOPENIA [None]
  - RESPIRATORY RATE DECREASED [None]
  - GENERAL PHYSICAL HEALTH DETERIORATION [None]
  - CARDIAC MURMUR [None]
  - PAIN [None]
  - VOMITING [None]
  - CHEST PAIN [None]
  - BLOOD PRESSURE INCREASED [None]
  - ARTHRALGIA [None]
  - HYPOKALAEMIA [None]
  - RESPIRATORY ALKALOSIS [None]
  - DIARRHOEA [None]
  - DYSPNOEA EXERTIONAL [None]
  - ANAEMIA MACROCYTIC [None]
